FAERS Safety Report 9292175 (Version 1)
Quarter: 2012Q4

REPORT INFORMATION
  Report Type: Spontaneous
  Country: AT (occurrence: None)
  Receive Date: 20121015
  Receipt Date: 20121015
  Transmission Date: 20130627
  Serious: Yes (Life-Threatening)
  Sender: FDA-Public Use
  Company Number: GAM-215-12-AU

PATIENT
  Age: 68 Year
  Sex: Male

DRUGS (1)
  1. OCTAGAM [Suspect]
     Indication: CHRONIC INFLAMMATORY DEMYELINATING POLYRADICULONEUROPATHY
     Dosage: (1c 4/weeks)  (not otherwise specified)
     Route: 042
     Dates: start: 20120813, end: 20120813

REACTIONS (1)
  - Pharyngeal oedema [None]
